FAERS Safety Report 7301192-7 (Version None)
Quarter: 2011Q1

REPORT INFORMATION
  Report Type: 
  Country: None (occurrence: None)
  Receive Date: 20110218
  Receipt Date: 20110210
  Transmission Date: 20110831
  Serious: Yes (Life-Threatening, Hospitalization)
  Sender: FDA-Public Use
  Company Number: ES-ABBOTT-10P-144-0684999-00

PATIENT
  Sex: Male
  Weight: 71 kg

DRUGS (6)
  1. FERRITIN [Concomitant]
     Indication: ANAEMIA
  2. CARVEDILOL [Concomitant]
     Indication: PRODUCT USED FOR UNKNOWN INDICATION
     Route: 048
  3. KALETRA [Suspect]
     Indication: HIV INFECTION
  4. ALPRAZOLAM [Concomitant]
     Indication: PRODUCT USED FOR UNKNOWN INDICATION
     Route: 048
  5. KALETRA [Suspect]
     Indication: HEPATITIS C
     Dosage: 200/50 MG (1 TABLET, 2 IN 12 HRS)
     Route: 048
     Dates: start: 20090901
  6. FOLIC ACID [Concomitant]
     Indication: ANAEMIA
     Route: 048

REACTIONS (2)
  - AORTIC DISSECTION [None]
  - ACUTE MYOCARDIAL INFARCTION [None]
